FAERS Safety Report 5247982-6 (Version None)
Quarter: 2007Q1

REPORT INFORMATION
  Report Type: 
  Country: None (occurrence: None)
  Receive Date: 20070227
  Receipt Date: 20070213
  Transmission Date: 20070707
  Serious: Yes (Disabling)
  Sender: FDA-Public Use
  Company Number: 2007AP01039

PATIENT
  Age: 79 Year
  Sex: Male

DRUGS (6)
  1. MARCAINE [Suspect]
     Indication: SPINAL ANAESTHESIA
     Route: 037
     Dates: start: 20061129
  2. XYLOCAINE [Suspect]
     Indication: EPIDURAL ANAESTHESIA
     Route: 008
     Dates: start: 20061129
  3. ANAPEINE [Suspect]
     Indication: EPIDURAL ANAESTHESIA
     Route: 008
     Dates: start: 20061129
  4. DORMICUM [Concomitant]
     Route: 042
     Dates: start: 20061129
  5. PENTAZOCINE LACTATE [Concomitant]
     Route: 042
     Dates: start: 20061129
  6. ROPION [Concomitant]
     Route: 042
     Dates: start: 20061129

REACTIONS (2)
  - ANORECTAL DISORDER [None]
  - BLADDER DISORDER [None]
